FAERS Safety Report 10161094 (Version 2)
Quarter: 2014Q2

REPORT INFORMATION
  Report Type: Spontaneous
  Country: US (occurrence: US)
  Receive Date: 20140508
  Receipt Date: 20140523
  Transmission Date: 20141212
  Serious: No
  Sender: FDA-Public Use
  Company Number: US-PFIZER INC-2014122856

PATIENT
  Age: 37 Year
  Sex: Female
  Weight: 86.17 kg

DRUGS (1)
  1. REVATIO [Suspect]
     Indication: PULMONARY HYPERTENSION
     Dosage: 20 MG, 3X/DAY
     Dates: end: 201404

REACTIONS (3)
  - Fatigue [Unknown]
  - Dyspnoea [Unknown]
  - Hypoaesthesia [Unknown]
